FAERS Safety Report 17051719 (Version 1)
Quarter: 2019Q4

REPORT INFORMATION
  Report Type: Spontaneous
  Country: KR (occurrence: KR)
  Receive Date: 20191120
  Receipt Date: 20191120
  Transmission Date: 20200122
  Serious: Yes (Other)
  Sender: FDA-Public Use
  Company Number: KR-SUN PHARMACEUTICAL INDUSTRIES LTD-2019R1-228192

PATIENT
  Age: 49 Year
  Sex: Female

DRUGS (7)
  1. CISPLATIN. [Suspect]
     Active Substance: CISPLATIN
     Indication: GESTATIONAL TROPHOBLASTIC TUMOUR
     Dosage: UNK
     Route: 065
  2. PACLITAXEL. [Suspect]
     Active Substance: PACLITAXEL
     Indication: GESTATIONAL TROPHOBLASTIC TUMOUR
     Dosage: UNK
     Route: 065
  3. VINCRISTINE [Suspect]
     Active Substance: VINCRISTINE
     Indication: GESTATIONAL TROPHOBLASTIC TUMOUR
     Dosage: UNK
     Route: 065
  4. CYCLOPHOSPHAMIDE. [Suspect]
     Active Substance: CYCLOPHOSPHAMIDE
     Indication: GESTATIONAL TROPHOBLASTIC TUMOUR
     Dosage: UNK
     Route: 065
  5. ACTINOMYCIN D [Suspect]
     Active Substance: DACTINOMYCIN
     Indication: GESTATIONAL TROPHOBLASTIC TUMOUR
     Dosage: UNK
     Route: 065
  6. ETOPOSIDE. [Suspect]
     Active Substance: ETOPOSIDE
     Indication: GESTATIONAL TROPHOBLASTIC TUMOUR
     Dosage: UNK
     Route: 065
  7. METHOTREXATE. [Suspect]
     Active Substance: METHOTREXATE
     Indication: GESTATIONAL TROPHOBLASTIC TUMOUR
     Dosage: UNK
     Route: 065

REACTIONS (2)
  - Fatigue [Unknown]
  - Disease recurrence [Unknown]

NARRATIVE: CASE EVENT DATE: 201203
